FAERS Safety Report 6894908-5 (Version None)
Quarter: 2010Q3

REPORT INFORMATION
  Report Type: 
  Country: None (occurrence: None)
  Receive Date: 20100730
  Receipt Date: 20100730
  Transmission Date: 20110219
  Serious: Yes (Hospitalization)
  Sender: FDA-Public Use
  Company Number: None

PATIENT
  Age: 70 Year
  Sex: Female
  Weight: 83.9154 kg

DRUGS (2)
  1. ROPINIROLE (REQUIP) (MFG: WOCKHARDT US) [Suspect]
     Indication: RESTLESS LEGS SYNDROME
     Dosage: 2MG 3/DAY ORAL
     Route: 048
     Dates: start: 20100604
  2. ROPINIROLE (REQUIP) (MFG: WOCKHARDT US) [Suspect]
     Indication: RESTLESS LEGS SYNDROME
     Dosage: 2MG 3/DAY ORAL
     Route: 048
     Dates: start: 20100616

REACTIONS (7)
  - DIZZINESS [None]
  - ERYTHEMA [None]
  - FEELING ABNORMAL [None]
  - FEELING HOT [None]
  - FLUSHING [None]
  - MALAISE [None]
  - NAUSEA [None]
